FAERS Safety Report 4771304-8 (Version None)
Quarter: 2005Q3

REPORT INFORMATION
  Report Type: 
  Country: None (occurrence: None)
  Receive Date: 20050914
  Receipt Date: 20050831
  Transmission Date: 20060218
  Serious: Yes (Other)
  Sender: FDA-Public Use
  Company Number: US_0509121504

PATIENT
  Age: 36 Year
  Sex: Male

DRUGS (2)
  1. CYMBALTA [Suspect]
     Indication: CHRONIC FATIGUE SYNDROME
     Dates: start: 20050618
  2. FLUOXETINE [Concomitant]

REACTIONS (6)
  - GINGIVAL BLEEDING [None]
  - INSOMNIA [None]
  - MOOD ALTERED [None]
  - OBSESSIVE THOUGHTS [None]
  - SELF MUTILATION [None]
  - SUICIDAL IDEATION [None]
